FAERS Safety Report 20161013 (Version 2)
Quarter: 2021Q4

REPORT INFORMATION
  Report Type: Report from Study
  Country: US (occurrence: US)
  Receive Date: 20211208
  Receipt Date: 20211216
  Transmission Date: 20220303
  Serious: Yes (Other)
  Sender: FDA-Public Use
  Company Number: US-GILEAD-2021-0559699

PATIENT
  Sex: Female

DRUGS (3)
  1. SACITUZUMAB GOVITECAN [Suspect]
     Active Substance: SACITUZUMAB GOVITECAN
     Indication: Product used for unknown indication
     Dosage: C1D1
     Route: 065
     Dates: start: 20210803, end: 20210803
  2. SACITUZUMAB GOVITECAN [Suspect]
     Active Substance: SACITUZUMAB GOVITECAN
     Dosage: C1D8
     Route: 065
     Dates: start: 20210810, end: 20210810
  3. SACITUZUMAB GOVITECAN [Suspect]
     Active Substance: SACITUZUMAB GOVITECAN
     Dosage: C4D1
     Route: 065
     Dates: start: 20211116, end: 20211116

REACTIONS (1)
  - Disease progression [Unknown]
